FAERS Safety Report 6328840-2 (Version None)
Quarter: 2009Q3

REPORT INFORMATION
  Report Type: 
  Country: None (occurrence: None)
  Receive Date: 20090825
  Receipt Date: 20090825
  Transmission Date: 20100115
  Serious: Yes (Other)
  Sender: FDA-Public Use
  Company Number: None

PATIENT
  Sex: Male
  Weight: 77.1115 kg

DRUGS (1)
  1. AMPHETAMINE SULFATE [Suspect]
     Dosage: 20MG  THREE TIMES A DAY PO
     Route: 048
     Dates: start: 20090718, end: 20090818

REACTIONS (3)
  - DIZZINESS [None]
  - IMPAIRED WORK ABILITY [None]
  - PRODUCT QUALITY ISSUE [None]
